FAERS Safety Report 9542272 (Version 3)
Quarter: 2013Q4

REPORT INFORMATION
  Report Type: Other
  Country: JP (occurrence: JP)
  Receive Date: 20130923
  Receipt Date: 20131022
  Transmission Date: 20140711
  Serious: Yes (Other)
  Sender: FDA-Public Use
  Company Number: JP-NAPPMUNDI-GBR-2013-0015692

PATIENT
  Sex: Male

DRUGS (5)
  1. OXYCODONE HCL PR TABLET 40 MG [Suspect]
     Indication: PRODUCT USED FOR UNKNOWN INDICATION
     Dosage: 40 MG
     Route: 048
  2. MORPHINE SULFATE CR TABLET [Suspect]
     Indication: PRODUCT USED FOR UNKNOWN INDICATION
     Dosage: 60 MG, UNK
     Route: 048
  3. MORPHINE SULFATE CR TABLET [Suspect]
     Dosage: 80 MG, UNK
     Route: 048
  4. RIFAMPICIN [Interacting]
     Indication: PRODUCT USED FOR UNKNOWN INDICATION
  5. CYMBALTA [Concomitant]
     Indication: CANCER PAIN

REACTIONS (2)
  - Delirium [Unknown]
  - Inhibitory drug interaction [Recovering/Resolving]
